FAERS Safety Report 9255134 (Version 1)
Quarter: 2013Q2

REPORT INFORMATION
  Report Type: Spontaneous
  Country: BR (occurrence: BR)
  Receive Date: 20130425
  Receipt Date: 20130425
  Transmission Date: 20140414
  Serious: Yes (Hospitalization, Other)
  Sender: FDA-Public Use
  Company Number: BR-ELI_LILLY_AND_COMPANY-BR201304005627

PATIENT
  Age: 70 Year
  Sex: Female
  Weight: 70 kg

DRUGS (13)
  1. HUMULIN NPH [Suspect]
     Indication: TYPE 2 DIABETES MELLITUS
     Dosage: 12 IU, EACH MORNING
     Route: 058
     Dates: start: 2011
  2. HUMULIN NPH [Suspect]
     Dosage: 10 IU, EACH EVENING
     Route: 058
     Dates: start: 2011
  3. HUMULIN NPH [Suspect]
     Indication: TYPE 2 DIABETES MELLITUS
     Dosage: UNK, UNKNOWN
     Dates: start: 201208
  4. HUMULIN NPH [Suspect]
     Dosage: 22 IU, EACH MORNING
     Route: 058
  5. HUMULIN NPH [Suspect]
     Dosage: 20 IU, EACH EVENING
     Route: 058
  6. TAMOXIFENO [Concomitant]
     Indication: BREAST CANCER
     Dosage: UNK, UNKNOWN
  7. METFORMIN [Concomitant]
     Indication: DIABETES MELLITUS
     Dosage: UNK, UNKNOWN
     Dates: start: 2011
  8. ATENOLOL [Concomitant]
     Dosage: UNK, UNKNOWN
     Route: 065
     Dates: start: 2011
  9. RETEMIC [Concomitant]
     Indication: URINARY INCONTINENCE
     Dosage: UNK, UNKNOWN
     Route: 065
     Dates: start: 2011
  10. AMLODIPIN                          /00972401/ [Concomitant]
     Indication: HYPERTENSION
     Dosage: UNK, UNKNOWN
     Route: 065
     Dates: start: 2011
  11. LEVOTIROXINA [Concomitant]
     Indication: THYROID DISORDER
     Dosage: 125 MG, UNKNOWN
  12. SYNTHROID [Concomitant]
     Indication: THYROID DISORDER
     Dosage: UNK, UNKNOWN
  13. CIPROFIBRATO [Concomitant]
     Dosage: UNK, UNKNOWN

REACTIONS (12)
  - Thrombosis [Recovered/Resolved with Sequelae]
  - Blood glucose increased [Recovered/Resolved]
  - Blood glucose increased [Unknown]
  - Injection site bruising [Unknown]
  - Injection site mass [Unknown]
  - Nervousness [Unknown]
  - Injection site induration [Unknown]
  - Cataract [Unknown]
  - Muscle spasms [Unknown]
  - Pain in extremity [Unknown]
  - Diabetes mellitus inadequate control [Recovering/Resolving]
  - Arthralgia [Unknown]
